FAERS Safety Report 15286664 (Version 1)
Quarter: 2018Q3

REPORT INFORMATION
  Report Type: Spontaneous
  Country: US (occurrence: US)
  Receive Date: 20180816
  Receipt Date: 20180816
  Transmission Date: 20181010
  Serious: No
  Sender: FDA-Public Use
  Company Number: US-AMGEN-USASP2018076241

PATIENT
  Age: 75 Year
  Sex: Female
  Weight: 67 kg

DRUGS (12)
  1. PARSABIV [Suspect]
     Active Substance: ETELCALCETIDE HYDROCHLORIDE
     Indication: HYPERPARATHYROIDISM SECONDARY
     Dosage: 5 MG, 3 TIMES/WK
     Route: 040
     Dates: start: 20180115
  2. PARSABIV [Suspect]
     Active Substance: ETELCALCETIDE HYDROCHLORIDE
     Dosage: 15 MG, 3 TIMES/WK
     Route: 040
     Dates: start: 20180409, end: 20180423
  3. TRAZODONE [Concomitant]
     Active Substance: TRAZODONE HYDROCHLORIDE
     Dosage: 50 MG, QHS
     Route: 048
     Dates: start: 20180530
  4. TOLTERODINE [Concomitant]
     Active Substance: TOLTERODINE
     Dosage: 4 MG, QD
     Route: 048
     Dates: start: 20180530
  5. SIMVASTATIN. [Concomitant]
     Active Substance: SIMVASTATIN
     Dosage: 20 MG, QD
     Route: 048
     Dates: start: 20180530
  6. RENVELA [Concomitant]
     Active Substance: SEVELAMER CARBONATE
     Dosage: 800 MG 3 TABLETS, TID
     Route: 048
     Dates: start: 20180611
  7. METOPROLOL. [Concomitant]
     Active Substance: METOPROLOL
     Dosage: 25 MG, BID
     Route: 048
     Dates: start: 20180530
  8. SENSIPAR [Concomitant]
     Active Substance: CINACALCET HYDROCHLORIDE
     Dosage: 90 MG, QD
     Route: 048
     Dates: start: 20180507
  9. MEMANTINE HCL [Concomitant]
     Active Substance: MEMANTINE
     Dosage: 5 MG, BID
     Route: 048
     Dates: start: 20180530
  10. ZOFRAN [Concomitant]
     Active Substance: ONDANSETRON HYDROCHLORIDE
     Dosage: 4 MG, UNK
     Route: 048
     Dates: start: 20180611
  11. PARSABIV [Suspect]
     Active Substance: ETELCALCETIDE HYDROCHLORIDE
     Dosage: 10 MG, 3 TIMES/WK
     Route: 040
     Dates: start: 20180219
  12. ALLOPURINOL. [Concomitant]
     Active Substance: ALLOPURINOL
     Dosage: 100 MG, QD
     Route: 048
     Dates: start: 20180530

REACTIONS (3)
  - Overdose [Unknown]
  - Nausea [Recovered/Resolved]
  - Vomiting [Recovered/Resolved]

NARRATIVE: CASE EVENT DATE: 20180219
